FAERS Safety Report 9527885 (Version 3)
Quarter: 2013Q4

REPORT INFORMATION
  Report Type: Spontaneous
  Country: US (occurrence: US)
  Receive Date: 20130917
  Receipt Date: 20131031
  Transmission Date: 20140711
  Serious: No
  Sender: FDA-Public Use
  Company Number: US-PFIZER INC-2013263703

PATIENT
  Age: 74 Year
  Sex: Male

DRUGS (5)
  1. NITROSTAT [Suspect]
     Indication: ANGINA PECTORIS
     Dosage: 0.4 MG, AS NEEDED
     Route: 060
     Dates: start: 201111
  2. AMLODIPINE [Concomitant]
     Dosage: 5 MG, UNK
  3. ATORVASTATIN CALCIUM [Concomitant]
     Dosage: 80 MG, UNK
  4. PROPRANOLOL [Concomitant]
     Dosage: 20 MG, UNK
  5. FENOFIBRATE [Concomitant]
     Dosage: UNK

REACTIONS (1)
  - Drug ineffective [Unknown]
